FAERS Safety Report 25179493 (Version 1)
Quarter: 2025Q2

REPORT INFORMATION
  Report Type: Spontaneous
  Country: US (occurrence: None)
  Receive Date: 20250408
  Receipt Date: 20250408
  Transmission Date: 20250717
  Serious: Yes (Hospitalization)
  Sender: FDA-CTU
  Company Number: None

PATIENT
  Age: 45 Year
  Sex: Female

DRUGS (9)
  1. SUBLOCADE [Suspect]
     Active Substance: BUPRENORPHINE
     Indication: Drug dependence
     Route: 058
     Dates: start: 20250127
  2. ATARAX 10MG TABLETS [Concomitant]
  3. BENADRYL 25MG ALLERGY ULTRA TABS [Concomitant]
  4. DEPAKOTE 500MG DELAYED RELEASE TABS [Concomitant]
  5. FOCALIN XR 10MG CAPSULES [Concomitant]
  6. NEURONTIN 400MG CAPSULES [Concomitant]
  7. NICOTINE 2MG SF FRUIT GUM 100S [Concomitant]
  8. TYLENOL 500MG E/S (ACETAMINOPHEN) T [Concomitant]
  9. ZYPREXA 10MG TABLETS [Concomitant]

REACTIONS (1)
  - Mental disorder [None]

NARRATIVE: CASE EVENT DATE: 20250404
